FAERS Safety Report 4474651-2 (Version None)
Quarter: 2004Q4

REPORT INFORMATION
  Report Type: 
  Country: None (occurrence: None)
  Receive Date: 20041012
  Receipt Date: 20040924
  Transmission Date: 20050328
  Serious: Yes (Other)
  Sender: FDA-Public Use
  Company Number: 2004AL000301

PATIENT
  Age: 40 Year
  Sex: Male

DRUGS (2)
  1. MORPHINE SO4 [Suspect]
     Dosage: 100 MG , BID; PO
     Route: 048
  2. CLOZAPINE [Suspect]
     Dosage: 50 MG, BID; PO
     Route: 048
     Dates: start: 20031104, end: 20031110

REACTIONS (5)
  - ANXIETY [None]
  - ELECTROCARDIOGRAM ABNORMAL [None]
  - ELECTROCARDIOGRAM QT CORRECTED INTERVAL PROLONGED [None]
  - HYPOTENSION [None]
  - TACHYCARDIA [None]
